FAERS Safety Report 21993330 (Version 3)
Quarter: 2023Q4

REPORT INFORMATION
  Report Type: Other
  Country: JP (occurrence: JP)
  Receive Date: 20230215
  Receipt Date: 20231127
  Transmission Date: 20240109
  Serious: Yes (Death, Hospitalization)
  Sender: FDA-Public Use
  Company Number: JP-CHUGAI-2023004751

PATIENT
  Age: 73 Year
  Sex: Male

DRUGS (4)
  1. ROZLYTREK [Suspect]
     Active Substance: ENTRECTINIB
     Indication: Lung adenocarcinoma
     Route: 048
     Dates: start: 20221206
  2. ROZLYTREK [Suspect]
     Active Substance: ENTRECTINIB
     Route: 048
  3. ROZLYTREK [Suspect]
     Active Substance: ENTRECTINIB
     Route: 048
  4. ROZLYTREK [Suspect]
     Active Substance: ENTRECTINIB
     Route: 048

REACTIONS (3)
  - Pericarditis malignant [Fatal]
  - Cardiac failure [Not Recovered/Not Resolved]
  - Neurological symptom [Unknown]
